FAERS Safety Report 4816965-X (Version None)
Quarter: 2005Q3

REPORT INFORMATION
  Report Type: 
  Country: None (occurrence: None)
  Receive Date: 20050929
  Receipt Date: 20050620
  Transmission Date: 20060218
  Serious: No
  Sender: FDA-Public Use
  Company Number: 05P-163-0303608-00

PATIENT
  Age: 46 Year
  Sex: Female
  Weight: 63.5036 kg

DRUGS (7)
  1. HUMIRA [Suspect]
     Indication: RHEUMATOID ARTHRITIS
     Dosage: 40 MG, 1 IN 2 WK, SUBCUTANEOUS
     Route: 058
     Dates: start: 20050614
  2. SULFASALAZINE [Concomitant]
  3. PREDNISONE [Concomitant]
  4. VALORON N [Concomitant]
  5. LOTREL [Concomitant]
  6. ESOMEPRAZOLE [Concomitant]
  7. VENLAFAXINE HYDROCHLORIDE [Concomitant]

REACTIONS (1)
  - SUNBURN [None]
